FAERS Safety Report 21547860 (Version 1)
Quarter: 2022Q4

REPORT INFORMATION
  Report Type: Spontaneous
  Country: US (occurrence: US)
  Receive Date: 20221103
  Receipt Date: 20221103
  Transmission Date: 20230113
  Serious: No
  Sender: FDA-Public Use
  Company Number: US-UNITED THERAPEUTICS-UNT-2022-024487

PATIENT
  Sex: Female

DRUGS (2)
  1. REMODULIN [Suspect]
     Active Substance: TREPROSTINIL
     Indication: Pulmonary arterial hypertension
     Dosage: UNK, CONTINUING
     Route: 058
     Dates: start: 20220428
  2. REMODULIN [Suspect]
     Active Substance: TREPROSTINIL
     Dosage: 0.0198  ?G/KG, CONTINUING
     Route: 058
     Dates: start: 2022

REACTIONS (12)
  - Infusion site reaction [Unknown]
  - Infusion site rash [Unknown]
  - Infusion site infection [Unknown]
  - Infusion site erythema [Unknown]
  - Infusion site swelling [Unknown]
  - Infusion site warmth [Unknown]
  - Infusion site exfoliation [Unknown]
  - Infusion site rash [Unknown]
  - Infusion site pruritus [Unknown]
  - Infusion site discomfort [Unknown]
  - Infusion site pain [Unknown]
  - Infusion site induration [Unknown]

NARRATIVE: CASE EVENT DATE: 20220101
